FAERS Safety Report 18325759 (Version 2)
Quarter: 2020Q4

REPORT INFORMATION
  Report Type: Spontaneous
  Country: RU (occurrence: RU)
  Receive Date: 20200929
  Receipt Date: 20201021
  Transmission Date: 20210113
  Serious: Yes (Hospitalization, Other)
  Sender: FDA-Public Use
  Company Number: RU-ENDO PHARMACEUTICALS INC-2020-006428

PATIENT
  Age: 28 Year
  Sex: Male
  Weight: 81 kg

DRUGS (4)
  1. AVEED [Suspect]
     Active Substance: TESTOSTERONE UNDECANOATE
     Dosage: 1 DF, SINGLE
     Route: 030
     Dates: start: 20190622, end: 20190622
  2. METHANDROSTENOLONE [Suspect]
     Active Substance: METHANDROSTENOLONE
     Dosage: 1 DF, SINGLE
     Route: 065
     Dates: start: 20190622, end: 20190622
  3. METHANDROSTENOLONE [Suspect]
     Active Substance: METHANDROSTENOLONE
     Indication: MUSCLE HYPERTROPHY
     Dosage: COURSES ONCE EVERY 3-4 MONTHS
     Route: 065
     Dates: start: 2011
  4. AVEED [Suspect]
     Active Substance: TESTOSTERONE UNDECANOATE
     Indication: MUSCLE HYPERTROPHY
     Dosage: COURSES ONCE EVERY 3-4 MONTHS
     Route: 030
     Dates: start: 2011

REACTIONS (7)
  - Tricuspid valve incompetence [Unknown]
  - Cardiac aneurysm [Unknown]
  - Coronary artery thrombosis [Unknown]
  - Product use in unapproved indication [Unknown]
  - Myocardial infarction [Recovering/Resolving]
  - Mitral valve incompetence [Unknown]
  - Drug abuse [Unknown]

NARRATIVE: CASE EVENT DATE: 2011
